FAERS Safety Report 9341474 (Version 1)
Quarter: 2013Q2

REPORT INFORMATION
  Report Type: Spontaneous
  Country: KR (occurrence: KR)
  Receive Date: 20130611
  Receipt Date: 20130611
  Transmission Date: 20140414
  Serious: Yes (Other)
  Sender: FDA-Public Use
  Company Number: KR-JNJFOC-20130600715

PATIENT
  Age: 58 Year
  Sex: Male

DRUGS (1)
  1. NICORETTE FRESHMINT 2MG GUM [Suspect]
     Indication: PRODUCT USED FOR UNKNOWN INDICATION
     Route: 048

REACTIONS (2)
  - Nicotine dependence [Unknown]
  - Intentional drug misuse [Unknown]
